FAERS Safety Report 7047379-2 (Version None)
Quarter: 2010Q4

REPORT INFORMATION
  Report Type: 
  Country: None (occurrence: None)
  Receive Date: 20101015
  Receipt Date: 20101013
  Transmission Date: 20110411
  Serious: Yes (Death, Hospitalization)
  Sender: FDA-Public Use
  Company Number: PHHY2010US50802

PATIENT
  Sex: Female
  Weight: 100 kg

DRUGS (13)
  1. EXJADE [Suspect]
     Indication: IRON OVERLOAD
     Dosage: 500 MG, QD
     Route: 048
     Dates: start: 20100610, end: 20100715
  2. EXJADE [Suspect]
     Indication: ANAEMIA
  3. VALTREX [Concomitant]
     Dosage: UNK
     Route: 048
  4. AMICAR [Concomitant]
     Indication: DEPRESSION
     Dosage: 500 MG, QID
     Route: 048
  5. ZOLOFT [Concomitant]
     Indication: DEPRESSION
     Dosage: 100 MG, UNK
     Route: 048
  6. POTASSIUM CHLORIDE [Concomitant]
     Indication: HYPOKALAEMIA
     Dosage: 40 MEQ, UNK
     Route: 048
  7. LISINOPRIL [Concomitant]
     Dosage: 40 MG, UNK
     Route: 048
  8. DIFLUCAN [Concomitant]
     Dosage: 200 MG, BID
  9. ATIVAN [Concomitant]
     Indication: ANXIETY
     Dosage: 0.5 MG, BID
     Route: 048
  10. ATIVAN [Concomitant]
     Indication: NAUSEA
  11. ATOVAQUONE [Concomitant]
     Dosage: 750 MG, BID
     Route: 048
  12. PRILOSEC [Concomitant]
     Dosage: 20 MG, QD
  13. LANTUS [Concomitant]
     Indication: DIABETES MELLITUS
     Route: 058

REACTIONS (8)
  - ACUTE MYELOID LEUKAEMIA [None]
  - FATIGUE [None]
  - FEBRILE NEUTROPENIA [None]
  - LEUKAEMIA RECURRENT [None]
  - MALIGNANT NEOPLASM PROGRESSION [None]
  - PAIN IN EXTREMITY [None]
  - PLATELET COUNT DECREASED [None]
  - WHITE BLOOD CELL COUNT DECREASED [None]
